FAERS Safety Report 21337440 (Version 1)
Quarter: 2022Q3

REPORT INFORMATION
  Report Type: Report from Study
  Country: ES (occurrence: ES)
  Receive Date: 20220915
  Receipt Date: 20220915
  Transmission Date: 20221027
  Serious: Yes (Hospitalization)
  Sender: FDA-Public Use
  Company Number: ES-JNJFOC-20211259527

PATIENT
  Age: 47 Year
  Sex: Male
  Weight: 84.7 kg

DRUGS (1)
  1. DARATUMUMAB [Suspect]
     Active Substance: DARATUMUMAB
     Indication: Plasma cell myeloma
     Dosage: MED KIT NUMBER-102907
     Route: 058
     Dates: start: 20211213, end: 20211220

REACTIONS (1)
  - HCoV-OC43 infection [Recovered/Resolved]

NARRATIVE: CASE EVENT DATE: 20211227
